FAERS Safety Report 18478708 (Version 1)
Quarter: 2020Q4

REPORT INFORMATION
  Report Type: Spontaneous
  Country: DE (occurrence: DE)
  Receive Date: 20201109
  Receipt Date: 20201109
  Transmission Date: 20210114
  Serious: Yes (Death, Other)
  Sender: FDA-Public Use
  Company Number: DE-MICRO LABS LIMITED-ML2020-03292

PATIENT
  Age: 16 Year
  Sex: Female

DRUGS (7)
  1. AMPHETAMINE [Suspect]
     Active Substance: AMPHETAMINE
  2. PMMA (PARAMETHOXYMETHAMPHETAMINE) [Suspect]
     Active Substance: 4-METHOXYMETHAMPHETAMINE
  3. MDA (3,4-METHYLENEDIOXYAMPHETAMINE) [Suspect]
     Active Substance: TENAMFETAMINE
  4. METHYLONE [Suspect]
     Active Substance: METHYLPREDNISOLONE
  5. MDMA (3,4-METHYLENEDIOXYMETHAMPHETAMINE) [Suspect]
     Active Substance: MIDOMAFETAMINE
  6. CAFFEINE CITRATE. [Suspect]
     Active Substance: CAFFEINE CITRATE
  7. MDEA (N-METHYLDIETHANOLAMINE) [Suspect]
     Active Substance: METHYL DIETHANOLAMINE

REACTIONS (2)
  - Drug abuse [Unknown]
  - Toxicity to various agents [Unknown]
